FAERS Safety Report 26122921 (Version 1)
Quarter: 2025Q4

REPORT INFORMATION
  Report Type: Spontaneous
  Country: JP (occurrence: JP)
  Receive Date: 20251204
  Receipt Date: 20251204
  Transmission Date: 20260118
  Serious: Yes (Death)
  Sender: PFIZER
  Company Number: JP-PFIZER INC-PV202500132630

PATIENT
  Age: 95 Year
  Sex: Female

DRUGS (2)
  1. PAXLOVID [Suspect]
     Active Substance: NIRMATRELVIR\RITONAVIR
     Indication: COVID-19 treatment
     Dosage: 300 MG
     Route: 048
     Dates: start: 20251023, end: 20251028
  2. PREDONINE [Concomitant]
     Active Substance: PREDNISOLONE

REACTIONS (1)
  - Therapeutic product effect incomplete [Fatal]
